FAERS Safety Report 12622878 (Version 3)
Quarter: 2016Q4

REPORT INFORMATION
  Report Type: Spontaneous
  Country: None (occurrence: US)
  Receive Date: 20160804
  Receipt Date: 20161031
  Transmission Date: 20170207
  Serious: No
  Sender: FDA-Public Use
  Company Number: US-MERZ NORTH AMERICA, INC.-16MRZ-00471

PATIENT
  Age: 57 Year
  Sex: Female

DRUGS (3)
  1. XEOMIN [Suspect]
     Active Substance: INCOBOTULINUMTOXINA
     Indication: SKIN WRINKLING
  2. XEOMIN [Suspect]
     Active Substance: INCOBOTULINUMTOXINA
     Indication: SKIN COSMETIC PROCEDURE
  3. XEOMIN [Suspect]
     Active Substance: INCOBOTULINUMTOXINA
     Indication: SKIN WRINKLING
     Dosage: 23 UNITS TOTAL
     Dates: start: 20160414, end: 20160414

REACTIONS (5)
  - Condition aggravated [Unknown]
  - Paraesthesia [Unknown]
  - Basal cell carcinoma [Unknown]
  - Antinuclear antibody [Unknown]
  - Off label use [Unknown]

NARRATIVE: CASE EVENT DATE: 2016
